FAERS Safety Report 19032425 (Version 1)
Quarter: 2021Q1

REPORT INFORMATION
  Report Type: Spontaneous
  Country: PK (occurrence: PK)
  Receive Date: 20210319
  Receipt Date: 20210319
  Transmission Date: 20210420
  Serious: Yes (Other)
  Sender: FDA-Public Use
  Company Number: PK-LUPIN PHARMACEUTICALS INC.-2021-03297

PATIENT
  Age: 49 Year
  Sex: Female

DRUGS (6)
  1. EFAVIRENZ. [Concomitant]
     Active Substance: EFAVIRENZ
     Indication: HIV INFECTION
     Dosage: UNK
     Route: 065
  2. LAMIVUDINE. [Concomitant]
     Active Substance: LAMIVUDINE
     Indication: HIV INFECTION
     Dosage: UNK
     Route: 065
  3. BUSPIRONE [Suspect]
     Active Substance: BUSPIRONE HYDROCHLORIDE
     Indication: HIV-ASSOCIATED NEUROCOGNITIVE DISORDER
     Dosage: 5 MILLIGRAM, BID
     Route: 065
     Dates: start: 2017
  4. FLUOXETINE [Suspect]
     Active Substance: FLUOXETINE HYDROCHLORIDE
     Indication: HIV-ASSOCIATED NEUROCOGNITIVE DISORDER
     Dosage: 20 MILLIGRAM, QD
     Route: 065
  5. TENOFOVIR [Concomitant]
     Active Substance: TENOFOVIR
     Indication: HIV INFECTION
     Dosage: UNK
     Route: 065
  6. VITAMIN B12 [VITAMIN B12 NOS] [Concomitant]
     Active Substance: CYANOCOBALAMIN
     Indication: SUPPLEMENTATION THERAPY
     Dosage: UNK
     Route: 065

REACTIONS (1)
  - Drug ineffective [Unknown]
